FAERS Safety Report 13498563 (Version 1)
Quarter: 2017Q2

REPORT INFORMATION
  Report Type: Spontaneous
  Country: US (occurrence: US)
  Receive Date: 20170428
  Receipt Date: 20170428
  Transmission Date: 20170830
  Serious: Yes (Other)
  Sender: FDA-Public Use
  Company Number: None

PATIENT
  Sex: Female

DRUGS (1)
  1. SUTENT [Suspect]
     Active Substance: SUNITINIB MALATE
     Indication: RENAL CANCER
     Dosage: 50 MG ONCE DAILY FOR 4 WEEKS ON AND 2 WEEKS OFF
     Route: 048
     Dates: start: 20170407

REACTIONS (2)
  - Drug effect decreased [None]
  - Blood pressure increased [None]
